FAERS Safety Report 17502070 (Version 1)
Quarter: 2020Q1

REPORT INFORMATION
  Report Type: Spontaneous
  Country: US (occurrence: US)
  Receive Date: 20200305
  Receipt Date: 20200305
  Transmission Date: 20200409
  Serious: No
  Sender: FDA-Public Use
  Company Number: US-KYOWAKIRIN-2020BKK003142

PATIENT

DRUGS (2)
  1. SANCUSO [Suspect]
     Active Substance: GRANISETRON
     Dosage: 2 PATCHES, CONSECUTIVELY
     Route: 061
     Dates: start: 20200220
  2. SANCUSO [Suspect]
     Active Substance: GRANISETRON
     Indication: PROPHYLAXIS OF NAUSEA AND VOMITING
     Dosage: 1 PATCH EVERY OTHER WEEK
     Route: 061
     Dates: start: 20200101, end: 202002

REACTIONS (9)
  - Malaise [Unknown]
  - Inappropriate schedule of product administration [Not Recovered/Not Resolved]
  - Incorrect product administration duration [Not Recovered/Not Resolved]
  - Drug ineffective [Unknown]
  - Dry skin [Unknown]
  - Injection site pruritus [Unknown]
  - Wrong technique in product usage process [Not Recovered/Not Resolved]
  - Product adhesion issue [Unknown]
  - Intentional product misuse [Not Recovered/Not Resolved]

NARRATIVE: CASE EVENT DATE: 2020
